FAERS Safety Report 21485393 (Version 1)
Quarter: 2022Q4

REPORT INFORMATION
  Report Type: Spontaneous
  Country: BE (occurrence: BE)
  Receive Date: 20221020
  Receipt Date: 20221020
  Transmission Date: 20230113
  Serious: Yes (Hospitalization, Congenital Anomaly)
  Sender: FDA-Public Use
  Company Number: BE-TEVA-2022-BE-2817666

PATIENT
  Sex: Female

DRUGS (6)
  1. QUETIAPINE [Suspect]
     Active Substance: QUETIAPINE
     Indication: Drug therapy
     Route: 064
  2. OLANZAPINE [Suspect]
     Active Substance: OLANZAPINE
     Indication: Drug therapy
     Route: 064
  3. LITHIUM [Suspect]
     Active Substance: LITHIUM
     Indication: Drug therapy
     Dosage: 1200 MILLIGRAM DAILY; 15.52 MG/KG
     Route: 064
  4. LEVOTHYROXINE [Suspect]
     Active Substance: LEVOTHYROXINE
     Indication: Drug therapy
     Route: 064
  5. INSULIN NOS [Suspect]
     Active Substance: INSULIN NOS
     Indication: Drug therapy
     Route: 064
  6. ASPIRIN [Suspect]
     Active Substance: ASPIRIN
     Indication: Drug therapy
     Route: 064

REACTIONS (2)
  - Congenital floppy infant [Unknown]
  - Foetal exposure during pregnancy [Unknown]
